FAERS Safety Report 21089028 (Version 1)
Quarter: 2022Q3

REPORT INFORMATION
  Report Type: Spontaneous
  Country: US (occurrence: US)
  Receive Date: 20220715
  Receipt Date: 20220715
  Transmission Date: 20221026
  Serious: Yes (Other)
  Sender: FDA-Public Use
  Company Number: US-BAYER-2022A096393

PATIENT
  Age: 59 Year
  Sex: Male

DRUGS (2)
  1. AFRIN ORIGINAL NASAL [Suspect]
     Active Substance: OXYMETAZOLINE HYDROCHLORIDE
     Indication: Hypersensitivity
     Dosage: USING IT EVERYDAY IN EVERY 12 HRS
     Route: 065
  2. AFRIN ORIGINAL NASAL [Suspect]
     Active Substance: OXYMETAZOLINE HYDROCHLORIDE
     Indication: Nasopharyngitis

REACTIONS (4)
  - Respiratory arrest [Not Recovered/Not Resolved]
  - Brain injury [Not Recovered/Not Resolved]
  - Nasal injury [Not Recovered/Not Resolved]
  - Overdose [Not Recovered/Not Resolved]
